FAERS Safety Report 14353372 (Version 1)
Quarter: 2020Q3

REPORT INFORMATION
  Report Type: Spontaneous
  Country: FR (occurrence: FR)
  Receive Date: 20180105
  Receipt Date: 20180105
  Transmission Date: 20201105
  Serious: Yes (Death)
  Sender: FDA-Public Use
  Company Number: FR-BAXTER-2017BAX045084

PATIENT
  Age: 55 Year
  Sex: Male
  Weight: 75 kg

DRUGS (17)
  1. KETAMINE [Suspect]
     Active Substance: KETAMINE
     Indication: ANAESTHESIA PROCEDURE
     Route: 042
     Dates: start: 20170714, end: 20170714
  2. CLOXACILLIN [Suspect]
     Active Substance: CLOXACILLIN
     Indication: LOCALISED INFECTION
     Dosage: POUDRE POUR SOLUTION INJECTABLE (I.V.)
     Route: 042
     Dates: start: 20170714, end: 20170715
  3. PROTAMINE CHOAY [Suspect]
     Active Substance: PROTAMINE
     Indication: HEPARIN NEUTRALISATION THERAPY
     Dosage: 10000 UI/10 ML
     Route: 042
     Dates: start: 20170714, end: 20170714
  4. RINGERS SOLUTION [Suspect]
     Active Substance: CALCIUM CHLORIDE\POTASSIUM CHLORIDE\SODIUM CHLORIDE
     Indication: PRODUCT USED FOR UNKNOWN INDICATION
     Dosage: SOLUTION POUR PERFUSION
     Route: 042
     Dates: start: 20170714
  5. HEPARINE CHOAY [Suspect]
     Active Substance: HEPARIN SODIUM
     Indication: THROMBOSIS PROPHYLAXIS
     Dosage: .25000 UI/5 ML, SOLUTION INJECTABLE (I.V.) EN FLACON
     Route: 042
     Dates: start: 20170714, end: 20170714
  6. CHLORURE DE SODIUM 0,9 % BIOPERF, SOLUTION POUR PERFUSION [Suspect]
     Active Substance: SODIUM CHLORIDE
     Indication: PRODUCT USED FOR UNKNOWN INDICATION
     Route: 042
     Dates: start: 20170714
  7. EXACYL [Suspect]
     Active Substance: TRANEXAMIC ACID
     Indication: PRODUCT USED FOR UNKNOWN INDICATION
     Dosage: 0.5 GRAM/5 ML
     Route: 042
     Dates: start: 20170714, end: 20170714
  8. DOBUTAMINE [Suspect]
     Active Substance: DOBUTAMINE HYDROCHLORIDE
     Indication: BRADYCARDIA
     Dosage: 250 MG/20 ML, SOLUTION A DILUER POUR PERFUSION
     Route: 042
     Dates: start: 20170714
  9. EPHEDRINE. [Suspect]
     Active Substance: EPHEDRINE
     Indication: HYPOTENSION
     Route: 042
     Dates: start: 20170714, end: 20170714
  10. CUSTODIOL ATU (CALCIUM CHLORIDE\HISTIDINE\MAGNESIUM\MANNITOL\POTASSIUM\SODIUM CHLORIDE\TRYPTOPHAN) [Suspect]
     Active Substance: CALCIUM CL\HISTIDINE\MAGNESIUM\MANNITOL\POTASSIUM\SODIUM CL\TRYPTOPHAN
     Indication: CARDIOPLEGIA
     Route: 013
     Dates: start: 20170714, end: 20170714
  11. RINGER LACTATE VIAFLO, SOLUTION POUR PERFUSION [Suspect]
     Active Substance: CALCIUM CHLORIDE\POTASSIUM CHLORIDE\SODIUM CHLORIDE\SODIUM LACTATE
     Indication: PRODUCT USED FOR UNKNOWN INDICATION
     Route: 042
     Dates: start: 20170714
  12. MIDAZOLAM HYDROCHLORIDE. [Suspect]
     Active Substance: MIDAZOLAM HYDROCHLORIDE
     Indication: ANAESTHESIA PROCEDURE
     Route: 042
     Dates: start: 20170714, end: 20170714
  13. CISATRACURIUM. [Suspect]
     Active Substance: CISATRACURIUM
     Indication: ANAESTHESIA PROCEDURE
     Route: 042
     Dates: start: 20170714, end: 20170714
  14. PROPOFOL PANPHARMA 10 MG/ML EMULSION INJECTABLE [Suspect]
     Active Substance: PROPOFOL
     Indication: ANAESTHESIA PROCEDURE
     Route: 042
     Dates: start: 20170714
  15. NORADRENALINE [Suspect]
     Active Substance: NOREPINEPHRINE
     Indication: HYPOTENSION
     Dosage: 8MG/4ML
     Route: 042
     Dates: start: 20170714
  16. SUFENTANIL [Suspect]
     Active Substance: SUFENTANIL
     Indication: ANAESTHESIA PROCEDURE
     Route: 042
     Dates: start: 20170714
  17. ETOMIDATE LIPURO [Suspect]
     Active Substance: ETOMIDATE
     Indication: ANAESTHESIA PROCEDURE
     Dosage: 20 MG/10 ML, EMULSION INJECTABLE
     Route: 042
     Dates: start: 20170714, end: 20170714

REACTIONS (3)
  - Multiple organ dysfunction syndrome [Fatal]
  - Cardiogenic shock [Fatal]
  - Left ventricular failure [Fatal]

NARRATIVE: CASE EVENT DATE: 20170714
